FAERS Safety Report 15164850 (Version 2)
Quarter: 2022Q4

REPORT INFORMATION
  Report Type: Report from Study
  Country: US (occurrence: US)
  Receive Date: 20180719
  Receipt Date: 20221121
  Transmission Date: 20230112
  Serious: Yes (Hospitalization, Other)
  Sender: FDA-Public Use
  Company Number: US-BRISTOL-MYERS SQUIBB COMPANY-BMS-2018-051331

PATIENT
  Sex: Female

DRUGS (3)
  1. NIVOLUMAB [Suspect]
     Active Substance: NIVOLUMAB
     Indication: Acute myeloid leukaemia
     Dosage: 3 MG/KG, DAY 1 AND 14
     Route: 065
     Dates: start: 20180521, end: 20180521
  2. AZACITIDINE [Suspect]
     Active Substance: AZACITIDINE
     Indication: Acute myeloid leukaemia
     Dosage: 75 MG/M2X7DAYS
     Route: 042
     Dates: start: 20180521, end: 20180521
  3. IPILIMUMAB [Suspect]
     Active Substance: IPILIMUMAB
     Indication: Acute myeloid leukaemia
     Dosage: 1 MG/KG, DAY 1 AND THEN EVERY 6/12 WEEKS
     Route: 042
     Dates: start: 20180322, end: 20180322

REACTIONS (6)
  - Pneumonia [Recovering/Resolving]
  - Enterococcal infection [Recovering/Resolving]
  - Bacteraemia [Recovering/Resolving]
  - Deep vein thrombosis [Recovering/Resolving]
  - Neutropenia [Recovering/Resolving]
  - Pneumonitis [Recovering/Resolving]

NARRATIVE: CASE EVENT DATE: 20180531
